FAERS Safety Report 20777584 (Version 1)
Quarter: 2022Q2

REPORT INFORMATION
  Report Type: Spontaneous
  Country: US (occurrence: None)
  Receive Date: 20220502
  Receipt Date: 20220502
  Transmission Date: 20220720
  Serious: Yes (Other)
  Sender: FDA-Public Use
  Company Number: None

PATIENT
  Age: 55 Year
  Sex: Female
  Weight: 79.15 kg

DRUGS (1)
  1. BEBTELOVIMAB [Suspect]
     Active Substance: BEBTELOVIMAB
     Dosage: OTHER FREQUENCY : ONCE;?
     Route: 042

REACTIONS (2)
  - Abdominal pain [None]
  - Dyspnoea [None]

NARRATIVE: CASE EVENT DATE: 20220429
